FAERS Safety Report 7681761-5 (Version None)
Quarter: 2011Q3

REPORT INFORMATION
  Report Type: 
  Country: None (occurrence: None)
  Receive Date: 20110812
  Receipt Date: 20110804
  Transmission Date: 20111222
  Serious: Yes (Hospitalization)
  Sender: FDA-Public Use
  Company Number: PHHY2011PL68067

PATIENT
  Age: 33 Year
  Sex: Male

DRUGS (3)
  1. CYCLOSPORINE [Suspect]
     Indication: IMMUNOSUPPRESSION
  2. PREDNISOLONE [Suspect]
     Indication: IMMUNOSUPPRESSION
  3. MYCOPHENOLATE MOFETIL [Suspect]
     Indication: IMMUNOSUPPRESSION
     Dosage: 2 G, DAILY

REACTIONS (16)
  - KAPOSI'S SARCOMA [None]
  - THROMBOSIS [None]
  - RENAL FAILURE [None]
  - ANAEMIA [None]
  - DIARRHOEA [None]
  - THROMBOCYTOPENIA [None]
  - GASTROINTESTINAL HAEMORRHAGE [None]
  - LEUKOPENIA [None]
  - GASTRIC ULCER HAEMORRHAGE [None]
  - CYTOMEGALOVIRUS INFECTION [None]
  - PYREXIA [None]
  - DIABETES MELLITUS [None]
  - MELAENA [None]
  - GASTRITIS EROSIVE [None]
  - ASTHENIA [None]
  - TRANSPLANT FAILURE [None]
